FAERS Safety Report 6562090-X (Version None)
Quarter: 2010Q1

REPORT INFORMATION
  Report Type: 
  Country: None (occurrence: None)
  Receive Date: 20100130
  Receipt Date: 20091102
  Transmission Date: 20100710
  Serious: No
  Sender: FDA-Public Use
  Company Number: US-ABBOTT-09P-163-0606337-00

PATIENT
  Sex: Female

DRUGS (7)
  1. HUMIRA [Suspect]
     Indication: RHEUMATOID ARTHRITIS
     Dates: start: 20091101
  2. HUMIRA [Suspect]
     Indication: CROHN'S DISEASE
  3. 5-ASA [Concomitant]
     Indication: DRUG USE FOR UNKNOWN INDICATION
  4. METHOTREXATE [Concomitant]
     Indication: DRUG USE FOR UNKNOWN INDICATION
  5. NSAID'S [Concomitant]
     Indication: DRUG USE FOR UNKNOWN INDICATION
  6. COX-2 INHIBITORS [Concomitant]
     Indication: DRUG USE FOR UNKNOWN INDICATION
  7. ANALGESICS [Concomitant]
     Indication: DRUG USE FOR UNKNOWN INDICATION

REACTIONS (2)
  - DYSGEUSIA [None]
  - INJECTION SITE PAIN [None]
